FAERS Safety Report 13925115 (Version 3)
Quarter: 2017Q4

REPORT INFORMATION
  Report Type: Spontaneous
  Country: CZ (occurrence: CZ)
  Receive Date: 20170831
  Receipt Date: 20171004
  Transmission Date: 20180320
  Serious: Yes (Other)
  Sender: FDA-Public Use
  Company Number: CZ-AMGEN-CZESP2017129004

PATIENT
  Age: 47 Year
  Sex: Female

DRUGS (1)
  1. BLINCYTO [Suspect]
     Active Substance: BLINATUMOMAB
     Indication: ACUTE LYMPHOCYTIC LEUKAEMIA
     Dosage: UNK
     Route: 042

REACTIONS (3)
  - Hepatic enzyme increased [Recovering/Resolving]
  - Graft versus host disease in skin [Unknown]
  - Graft versus host disease [Unknown]

NARRATIVE: CASE EVENT DATE: 20170817
